FAERS Safety Report 4923772-6 (Version None)
Quarter: 2006Q1

REPORT INFORMATION
  Report Type: 
  Country: None (occurrence: None)
  Receive Date: 20060227
  Receipt Date: 20030113
  Transmission Date: 20060701
  Serious: Yes (Hospitalization, Other)
  Sender: FDA-Public Use
  Company Number: US-MERCK-0301USA01110

PATIENT
  Age: 44 Year
  Sex: Male
  Weight: 102 kg

DRUGS (7)
  1. VIOXX [Suspect]
     Indication: PAIN
     Route: 048
     Dates: start: 20000126, end: 20011201
  2. VIOXX [Suspect]
     Indication: INTERVERTEBRAL DISC PROTRUSION
     Route: 048
     Dates: start: 20000126, end: 20011201
  3. CLONIDINE [Concomitant]
     Indication: INFLAMMATION
     Route: 065
  4. CLONIDINE [Concomitant]
     Indication: PAIN
     Route: 065
  5. VICODIN [Concomitant]
     Route: 065
     Dates: start: 20000126
  6. SKELAXIN [Concomitant]
     Route: 065
     Dates: start: 20000126
  7. DESYREL [Concomitant]
     Route: 065
     Dates: start: 20000126

REACTIONS (36)
  - ABDOMINAL PAIN LOWER [None]
  - ANXIETY [None]
  - ASTHENIA [None]
  - BACK INJURY [None]
  - CEREBROVASCULAR ACCIDENT [None]
  - CHEST PAIN [None]
  - CHRONIC FATIGUE SYNDROME [None]
  - COORDINATION ABNORMAL [None]
  - DEPRESSION [None]
  - DIZZINESS [None]
  - DYSPNOEA [None]
  - DYSURIA [None]
  - EMOTIONAL DISORDER [None]
  - GASTROINTESTINAL HAEMORRHAGE [None]
  - GASTROOESOPHAGEAL REFLUX DISEASE [None]
  - HEADACHE [None]
  - HERNIA [None]
  - HYPERTENSION [None]
  - HYPERTENSIVE CRISIS [None]
  - INSOMNIA [None]
  - INTERVERTEBRAL DISC PROTRUSION [None]
  - LACUNAR INFARCTION [None]
  - MUSCLE CONTRACTURE [None]
  - MUSCLE SPASMS [None]
  - NAUSEA [None]
  - NECK PAIN [None]
  - OEDEMA PERIPHERAL [None]
  - PERIPHERAL VASCULAR DISORDER [None]
  - RADICULOPATHY [None]
  - ROAD TRAFFIC ACCIDENT [None]
  - SPINAL OSTEOARTHRITIS [None]
  - TINNITUS [None]
  - TRANSIENT ISCHAEMIC ATTACK [None]
  - VERTIGO POSITIONAL [None]
  - VOMITING [None]
  - WEIGHT DECREASED [None]
